FAERS Safety Report 21126563 (Version 1)
Quarter: 2022Q3

REPORT INFORMATION
  Report Type: Spontaneous
  Country: US (occurrence: None)
  Receive Date: 20220725
  Receipt Date: 20220725
  Transmission Date: 20221027
  Serious: Yes (Disabling, Other)
  Sender: FDA-Public Use
  Company Number: None

PATIENT
  Sex: Female
  Weight: 68.04 kg

DRUGS (3)
  1. SUBOXONE [Suspect]
     Active Substance: BUPRENORPHINE HYDROCHLORIDE\NALOXONE HYDROCHLORIDE
     Indication: Drug dependence
     Dates: start: 20100101, end: 20220101
  2. LITHIUM [Concomitant]
     Active Substance: LITHIUM
  3. VENLAFAXINE [Concomitant]
     Active Substance: VENLAFAXINE HYDROCHLORIDE

REACTIONS (12)
  - Bone disorder [None]
  - Tooth loss [None]
  - Deformity [None]
  - Impaired work ability [None]
  - Depression [None]
  - Injury [None]
  - Post-traumatic stress disorder [None]
  - Anger [None]
  - Withdrawal syndrome [None]
  - Mental disorder [None]
  - Emotional disorder [None]
  - Suicidal ideation [None]

NARRATIVE: CASE EVENT DATE: 20220119
